FAERS Safety Report 7440776-2 (Version None)
Quarter: 2011Q2

REPORT INFORMATION
  Report Type: 
  Country: None (occurrence: None)
  Receive Date: 20110427
  Receipt Date: 20110420
  Transmission Date: 20111010
  Serious: Yes (Hospitalization)
  Sender: FDA-Public Use
  Company Number: FR-PFIZER INC-2011086534

PATIENT
  Age: 10 Year
  Sex: Male

DRUGS (12)
  1. SOLUPRED [Suspect]
     Indication: PYREXIA
  2. HYDROXYZINE [Suspect]
     Indication: HYPERSENSITIVITY
  3. CEFPODOXIME PROXETIL [Suspect]
     Indication: PYREXIA
  4. SOLUPRED [Suspect]
     Indication: COUGH
     Dosage: 30 MG, 2X/DAY
     Dates: start: 20110217, end: 20110218
  5. PULMICORT [Concomitant]
     Dosage: UNK
  6. CEFPODOXIME PROXETIL [Suspect]
     Indication: COUGH
     Dosage: 10 MG/ML, 2X/DAY
     Route: 048
     Dates: start: 20110217, end: 20110218
  7. CETIRIZINE [Concomitant]
     Dosage: UNK
  8. OXOMEMAZINE [Suspect]
     Indication: PYREXIA
  9. ATARAX [Concomitant]
     Dosage: UNK
  10. PHOLCODINE [Suspect]
     Indication: COUGH
     Dosage: UNK
     Dates: start: 20110217
  11. OXOMEMAZINE [Suspect]
     Indication: COUGH
     Dosage: 10 ML, 4X/DAY
     Route: 048
     Dates: start: 20110217, end: 20110218
  12. PHOLCODINE [Suspect]
     Indication: PYREXIA

REACTIONS (1)
  - PANCREATITIS ACUTE [None]
